FAERS Safety Report 9668383 (Version 2)
Quarter: 2013Q4

REPORT INFORMATION
  Report Type: Report from Study
  Country: FR (occurrence: FR)
  Receive Date: 20131104
  Receipt Date: 20131118
  Transmission Date: 20140711
  Serious: Yes (Other)
  Sender: FDA-Public Use
  Company Number: PHHY2013FR123661

PATIENT
  Age: 71 Year
  Sex: Female

DRUGS (8)
  1. ACLASTA/ZOLEDRONATE [Suspect]
     Dosage: UKN
     Route: 042
     Dates: start: 201205
  2. ACLASTA/ZOLEDRONATE [Suspect]
     Dosage: UKN
     Route: 042
     Dates: start: 201309
  3. INEXIUM//ESOMEPRAZOLE MAGNESIUM [Concomitant]
     Dosage: UKN
     Dates: start: 2000
  4. CRESTOR [Concomitant]
     Dosage: UKN
     Dates: start: 2011, end: 2012
  5. DEBRIDAT//TRIMEBUTINE [Concomitant]
     Dosage: UKN
  6. METEOSPASMYL [Concomitant]
     Dosage: UKN
  7. UTROGESTAN [Concomitant]
     Dosage: UKN
  8. OESCLIM [Concomitant]
     Dosage: UKN

REACTIONS (1)
  - Fractured sacrum [Recovered/Resolved]
